FAERS Safety Report 23360324 (Version 1)
Quarter: 2024Q1

REPORT INFORMATION
  Report Type: Spontaneous
  Country: CN (occurrence: CN)
  Receive Date: 20240103
  Receipt Date: 20240103
  Transmission Date: 20240410
  Serious: Yes (Death, Other)
  Sender: FDA-Public Use
  Company Number: CN-PFIZER INC-PV202300208349

PATIENT
  Age: 72 Year
  Sex: Male

DRUGS (1)
  1. AVIBACTAM SODIUM\CEFTAZIDIME [Suspect]
     Active Substance: AVIBACTAM SODIUM\CEFTAZIDIME
     Indication: Pneumonia bacterial
     Dosage: 2.5 G, 2X/DAY
     Route: 042
     Dates: start: 20231020

REACTIONS (18)
  - Multiple organ dysfunction syndrome [Fatal]
  - Urinary tract infection [Unknown]
  - Off label use [Unknown]
  - Myocardial infarction [Fatal]
  - Acute kidney injury [Unknown]
  - Chronic kidney disease [Unknown]
  - Hypoalbuminaemia [Unknown]
  - Amylase increased [Unknown]
  - Decubitus ulcer [Unknown]
  - Nephrogenic anaemia [Unknown]
  - Cardiac failure acute [Unknown]
  - Electrolyte imbalance [Unknown]
  - Bacteraemia [Unknown]
  - Venous thrombosis limb [Unknown]
  - Platelet count decreased [Unknown]
  - Drug-induced liver injury [Unknown]
  - Dysbiosis [Unknown]
  - Cardiac arrest [Recovered/Resolved]

NARRATIVE: CASE EVENT DATE: 20230101
